FAERS Safety Report 6396699-3 (Version None)
Quarter: 2009Q4

REPORT INFORMATION
  Report Type: 
  Country: None (occurrence: None)
  Receive Date: 20091012
  Receipt Date: 20090521
  Transmission Date: 20100525
  Serious: Yes (Hospitalization)
  Sender: FDA-Public Use
  Company Number: BR-PFIZER INC-2009217005

PATIENT
  Age: 15 Year

DRUGS (1)
  1. VFEND [Suspect]
     Dosage: 200 MG, UNK
     Route: 048
     Dates: start: 20090301

REACTIONS (1)
  - TRANSPLANT [None]
